FAERS Safety Report 11642270 (Version 1)
Quarter: 2015Q4

REPORT INFORMATION
  Report Type: Report from Study
  Country: US (occurrence: US)
  Receive Date: 20151019
  Receipt Date: 20151019
  Transmission Date: 20160304
  Serious: Yes (Hospitalization)
  Sender: FDA-Public Use
  Company Number: US-SEATTLE GENETICS-2015SGN01608

PATIENT

DRUGS (8)
  1. VINBLASTINE [Suspect]
     Active Substance: VINBLASTINE
     Indication: LYMPHOMA AIDS RELATED
  2. BRENTUXIMAB VEDOTIN [Suspect]
     Active Substance: BRENTUXIMAB VEDOTIN
     Indication: HODGKIN^S DISEASE
     Dosage: 1.2 MG/KG, QCYCLE
     Route: 042
     Dates: start: 20150707, end: 20150721
  3. DACARBAZINE. [Suspect]
     Active Substance: DACARBAZINE
     Indication: HODGKIN^S DISEASE
     Dosage: 375 MG/M2, QCYCLE
     Route: 042
     Dates: start: 20150707, end: 20150721
  4. DOXORUBICIN HYDROCHLORIDE. [Suspect]
     Active Substance: DOXORUBICIN HYDROCHLORIDE
     Indication: LYMPHOMA AIDS RELATED
     Dosage: 25 MG/M2, QCYCLE
     Route: 042
     Dates: start: 20150707, end: 20150721
  5. BRENTUXIMAB VEDOTIN [Suspect]
     Active Substance: BRENTUXIMAB VEDOTIN
     Indication: LYMPHOMA AIDS RELATED
  6. DACARBAZINE. [Suspect]
     Active Substance: DACARBAZINE
     Indication: LYMPHOMA AIDS RELATED
  7. DOXORUBICIN HYDROCHLORIDE. [Suspect]
     Active Substance: DOXORUBICIN HYDROCHLORIDE
     Indication: HODGKIN^S DISEASE
  8. VINBLASTINE [Suspect]
     Active Substance: VINBLASTINE
     Indication: HODGKIN^S DISEASE
     Dosage: 6 MG/M2, QCYCLE
     Route: 042
     Dates: start: 20150707, end: 20150721

REACTIONS (6)
  - Vomiting [Recovered/Resolved]
  - Neutrophil count decreased [Recovering/Resolving]
  - Diarrhoea [None]
  - Nausea [None]
  - Hyponatraemia [None]
  - White blood cell count decreased [Recovering/Resolving]

NARRATIVE: CASE EVENT DATE: 20150727
